FAERS Safety Report 25132823 (Version 1)
Quarter: 2025Q1

REPORT INFORMATION
  Report Type: Spontaneous
  Country: US (occurrence: US)
  Receive Date: 20250328
  Receipt Date: 20250328
  Transmission Date: 20250409
  Serious: Yes (Hospitalization, Other)
  Sender: GLAXOSMITHKLINE
  Company Number: US-GLAXOSMITHKLINE INC-US2025031455

PATIENT

DRUGS (2)
  1. NUCALA [Suspect]
     Active Substance: MEPOLIZUMAB
     Indication: Sinus polyp
     Dosage: 100 MG/ML, MO
     Route: 058
     Dates: start: 2025
  2. NUCALA [Suspect]
     Active Substance: MEPOLIZUMAB
     Indication: Sinus polyp degeneration
     Dosage: 100 MG, Q4W
     Route: 058
     Dates: start: 202412

REACTIONS (4)
  - Cardiac arrest [Not Recovered/Not Resolved]
  - Head injury [Recovered/Resolved]
  - Fall [Unknown]
  - Product storage error [Unknown]

NARRATIVE: CASE EVENT DATE: 20250307
